APPROVED DRUG PRODUCT: LORATADINE
Active Ingredient: LORATADINE
Strength: 10MG
Dosage Form/Route: TABLET;ORAL
Application: A076471 | Product #001
Applicant: APOTEX INC
Approved: Feb 14, 2006 | RLD: No | RS: No | Type: OTC